FAERS Safety Report 8205602-2 (Version None)
Quarter: 2012Q1

REPORT INFORMATION
  Report Type: 
  Country: None (occurrence: None)
  Receive Date: 20120313
  Receipt Date: 20120202
  Transmission Date: 20120608
  Serious: Yes (Life-Threatening)
  Sender: FDA-Public Use
  Company Number: JP-TEVA-320977ISR

PATIENT
  Age: 56 Year
  Sex: Male
  Weight: 68.1 kg

DRUGS (1)
  1. BENDAMUSTINE [Suspect]
     Indication: B-CELL LYMPHOMA
     Route: 042
     Dates: start: 20110408, end: 20111005

REACTIONS (1)
  - CYTOMEGALOVIRUS INFECTION [None]
